FAERS Safety Report 9745466 (Version 1)
Quarter: 2013Q4

REPORT INFORMATION
  Report Type: Spontaneous
  Country: US (occurrence: None)
  Receive Date: 20131204
  Receipt Date: 20131204
  Transmission Date: 20140711
  Serious: Yes (Other)
  Sender: FDA-Public Use
  Company Number: 2013AP010090

PATIENT
  Age: 41 Year
  Sex: Female
  Weight: 56 kg

DRUGS (14)
  1. FERRIPROX [Suspect]
     Indication: THALASSAEMIA
     Route: 048
     Dates: start: 201308, end: 201311
  2. FERRIPROX [Suspect]
     Indication: HAEMOCHROMATOSIS
     Route: 048
     Dates: start: 201308, end: 201311
  3. COREG [Concomitant]
  4. DIOVAN [Concomitant]
  5. CELEXA /00582602/ [Concomitant]
  6. COUMADIN /00014802/ [Concomitant]
  7. DESFERAL [Concomitant]
  8. MORPHINE SULFATE [Concomitant]
  9. SPIRONOLACTONE [Concomitant]
  10. EXCEDRIN MIGRAINE [Concomitant]
  11. FOLIC ACID [Concomitant]
  12. MULTIVITAMIN /00831701/ [Concomitant]
  13. VITAMIN C /00008001/ [Concomitant]
  14. CALCIUM + VITAMIN D [Concomitant]

REACTIONS (1)
  - Neutropenia [None]
